FAERS Safety Report 23024034 (Version 1)
Quarter: 2023Q4

REPORT INFORMATION
  Report Type: Spontaneous
  Country: US (occurrence: US)
  Receive Date: 20231003
  Receipt Date: 20231003
  Transmission Date: 20240109
  Serious: No
  Sender: FDA-Public Use
  Company Number: US-JNJFOC-20230952859

PATIENT
  Age: 71 Year
  Sex: Male

DRUGS (4)
  1. ZYTIGA [Suspect]
     Active Substance: ABIRATERONE ACETATE
     Indication: Prostate cancer
     Route: 048
  2. ORGOVYX [Suspect]
     Active Substance: RELUGOLIX
     Indication: Prostate cancer
     Route: 048
     Dates: end: 20230910
  3. PREDNISONE [Concomitant]
     Active Substance: PREDNISONE
  4. VITAMIN B12 [Concomitant]
     Active Substance: CYANOCOBALAMIN

REACTIONS (9)
  - Presyncope [Unknown]
  - Rash [Unknown]
  - Gynaecomastia [Unknown]
  - Pollakiuria [Unknown]
  - Osteoporosis [Unknown]
  - Loose tooth [Unknown]
  - Product dose omission issue [Unknown]
  - Incorrect dose administered [Unknown]
  - Blood calcium decreased [Unknown]
